FAERS Safety Report 8533160-1 (Version None)
Quarter: 2012Q3

REPORT INFORMATION
  Report Type: 
  Country: None (occurrence: None)
  Receive Date: 20120724
  Receipt Date: 20120702
  Transmission Date: 20120928
  Serious: No
  Sender: FDA-Public Use
  Company Number: US-ROXANE LABORATORIES, INC.-2012-RO-01292RO

PATIENT
  Age: 44 Year
  Sex: Male

DRUGS (6)
  1. PRILOCAINE HYDROCHLORIDE [Concomitant]
  2. COUMADIN [Concomitant]
  3. METHADONE HCL [Suspect]
     Indication: PAIN
     Dosage: 30 MG
     Route: 048
  4. PERCOCET [Concomitant]
  5. PRAVASTATIN [Concomitant]
  6. OXYCODONE HCL [Concomitant]

REACTIONS (2)
  - DRUG SCREEN POSITIVE [None]
  - DRUG LEVEL DECREASED [None]
